FAERS Safety Report 19084128 (Version 1)
Quarter: 2021Q2

REPORT INFORMATION
  Report Type: Spontaneous
  Country: FR (occurrence: FR)
  Receive Date: 20210401
  Receipt Date: 20210401
  Transmission Date: 20210717
  Serious: Yes (Hospitalization)
  Sender: FDA-Public Use
  Company Number: FR-MYLANLABS-2021M1019693

PATIENT
  Age: 86 Year
  Sex: Female

DRUGS (4)
  1. OMEPRAZOLE. [Concomitant]
     Active Substance: OMEPRAZOLE
     Indication: PRODUCT USED FOR UNKNOWN INDICATION
     Dosage: 8 MG/H
     Route: 042
  2. ACETYLSALICYLIC ACID [Suspect]
     Active Substance: ASPIRIN
     Indication: MYOCARDIAL ISCHAEMIA
     Dosage: CHRONIC LOW?DOSE ASPIRIN THERAPY
     Route: 065
  3. EPINEPHRINE. [Suspect]
     Active Substance: EPINEPHRINE
     Indication: DIEULAFOY^S VASCULAR MALFORMATION
     Dosage: 25 MILLILITER(EPINEPHRINE SOLUTION)
     Route: 065
  4. EPINEPHRINE. [Suspect]
     Active Substance: EPINEPHRINE
     Indication: HAEMOSTASIS

REACTIONS (2)
  - Dieulafoy^s vascular malformation [Recovered/Resolved]
  - Drug ineffective [Unknown]
